FAERS Safety Report 7749771-7 (Version None)
Quarter: 2011Q3

REPORT INFORMATION
  Report Type: 
  Country: None (occurrence: None)
  Receive Date: 20110914
  Receipt Date: 20110905
  Transmission Date: 20111222
  Serious: Yes (Hospitalization)
  Sender: FDA-Public Use
  Company Number: FR-BRISTOL-MYERS SQUIBB COMPANY-16037541

PATIENT
  Age: 45 Year
  Sex: Male

DRUGS (5)
  1. LANSOPRAZOLE [Suspect]
     Route: 048
     Dates: start: 20110511, end: 20110515
  2. ZOLPIDEM [Suspect]
     Route: 048
     Dates: start: 20110511, end: 20110528
  3. SOLU-MEDROL [Suspect]
     Indication: BASEDOW'S DISEASE
     Dosage: FOUR 3-DAY COURSES
     Route: 042
     Dates: start: 20110510, end: 20110601
  4. KENACORT [Suspect]
     Indication: THYROID DERMATOPATHY
     Dates: start: 20110411
  5. LEVOTHYROXINE SODIUM [Concomitant]

REACTIONS (1)
  - CYTOLYTIC HEPATITIS [None]
